FAERS Safety Report 6445711-1 (Version None)
Quarter: 2009Q4

REPORT INFORMATION
  Report Type: 
  Country: None (occurrence: None)
  Receive Date: 20091118
  Receipt Date: 20091118
  Transmission Date: 20100525
  Serious: Yes (Life-Threatening, Hospitalization)
  Sender: FDA-Public Use
  Company Number: None

PATIENT
  Age: 47 Year
  Sex: Female
  Weight: 76 kg

DRUGS (1)
  1. HYDROXYCHLOROQUINE SULFATE [Suspect]
     Indication: SYSTEMIC LUPUS ERYTHEMATOSUS
     Dosage: 200 MG EVERY DAY PO
     Route: 048
     Dates: start: 20090805, end: 20090824

REACTIONS (8)
  - DOCUMENTED HYPERSENSITIVITY TO ADMINISTERED DRUG [None]
  - ERYTHEMA MULTIFORME [None]
  - GENITAL RASH [None]
  - LIP SWELLING [None]
  - SKIN EXFOLIATION [None]
  - SWOLLEN TONGUE [None]
  - URTICARIA [None]
  - VULVOVAGINAL PRURITUS [None]
